FAERS Safety Report 25193521 (Version 5)
Quarter: 2025Q3

REPORT INFORMATION
  Report Type: Spontaneous
  Country: JP (occurrence: JP)
  Receive Date: 20250414
  Receipt Date: 20250818
  Transmission Date: 20251021
  Serious: Yes (Hospitalization, Other)
  Sender: ALEXION PHARMACEUTICALS
  Company Number: JP-ASTRAZENECA-250034279_013120_P_1

PATIENT
  Age: 68 Year
  Sex: Male
  Weight: 74.3 kg

DRUGS (16)
  1. DURVALUMAB [Suspect]
     Active Substance: DURVALUMAB
     Indication: Hepatocellular carcinoma
     Dosage: 1500 MILLIGRAM, Q4W
  2. TREMELIMUMAB [Suspect]
     Active Substance: TREMELIMUMAB
     Indication: Hepatocellular carcinoma
  3. ASPIRIN [Concomitant]
     Active Substance: ASPIRIN
     Route: 065
  4. Maintane [Concomitant]
  5. ROSUVASTATIN [Concomitant]
     Active Substance: ROSUVASTATIN
  6. LANSOPRAZOLE [Concomitant]
     Active Substance: LANSOPRAZOLE
  7. LINAGLIPTIN [Concomitant]
     Active Substance: LINAGLIPTIN
  8. AZILSARTAN KAMEDOXOMIL [Concomitant]
     Active Substance: AZILSARTAN KAMEDOXOMIL
  9. BELSOMRA [Concomitant]
     Active Substance: SUVOREXANT
  10. AMLODIPINE BESYLATE [Concomitant]
     Active Substance: AMLODIPINE BESYLATE
  11. CLOBETASOL PROPIONATE [Concomitant]
     Active Substance: CLOBETASOL PROPIONATE
  12. BETAMETHASONE DIPROPIONATE [Concomitant]
     Active Substance: BETAMETHASONE DIPROPIONATE
  13. GLYCOSAMINOGLYCANS [Concomitant]
     Active Substance: GLYCOSAMINOGLYCANS
  14. LEVOCETIRIZINE [Concomitant]
     Active Substance: LEVOCETIRIZINE
  15. FEXOFENADINE [Concomitant]
     Active Substance: FEXOFENADINE HYDROCHLORIDE
  16. ACETAMINOPHEN [Concomitant]
     Active Substance: ACETAMINOPHEN

REACTIONS (4)
  - Tumour pseudoprogression [Recovered/Resolved]
  - Pyrexia [Recovered/Resolved]
  - Thyroiditis [Not Recovered/Not Resolved]
  - Drug eruption [Recovered/Resolved]

NARRATIVE: CASE EVENT DATE: 20250324
